FAERS Safety Report 16782428 (Version 5)
Quarter: 2020Q4

REPORT INFORMATION
  Report Type: Spontaneous
  Country: US (occurrence: US)
  Receive Date: 20190906
  Receipt Date: 20201023
  Transmission Date: 20210113
  Serious: Yes (Hospitalization, Other)
  Sender: FDA-Public Use
  Company Number: US-ASTRAZENECA-2019SF26260

PATIENT
  Age: 15610 Day
  Sex: Female
  Weight: 149.2 kg

DRUGS (89)
  1. FARXIGA [Suspect]
     Active Substance: DAPAGLIFLOZIN PROPANEDIOL
     Indication: TYPE 2 DIABETES MELLITUS
     Route: 048
     Dates: start: 20161121
  2. FARXIGA [Suspect]
     Active Substance: DAPAGLIFLOZIN PROPANEDIOL
     Indication: WEIGHT DECREASED
     Route: 048
     Dates: start: 20161121
  3. FARXIGA [Suspect]
     Active Substance: DAPAGLIFLOZIN PROPANEDIOL
     Indication: BLOOD PRESSURE DECREASED
     Route: 048
     Dates: start: 20161121
  4. OXYCODONE [Concomitant]
     Active Substance: OXYCODONE
  5. NOVOLOG [Concomitant]
     Active Substance: INSULIN ASPART
  6. GABAPENTIN. [Concomitant]
     Active Substance: GABAPENTIN
  7. AUGMENTIN [Concomitant]
     Active Substance: AMOXICILLIN\CLAVULANATE POTASSIUM
  8. LEVEMIR [Concomitant]
     Active Substance: INSULIN DETEMIR
  9. SULFONAMIDE [Concomitant]
     Active Substance: UNSPECIFIED INGREDIENT
  10. PROPOFOL. [Concomitant]
     Active Substance: PROPOFOL
  11. BENADRYL [Concomitant]
     Active Substance: DIPHENHYDRAMINE HYDROCHLORIDE
  12. HYDROCHLOROTHIAZIDE. [Concomitant]
     Active Substance: HYDROCHLOROTHIAZIDE
  13. KLONOPIN [Concomitant]
     Active Substance: CLONAZEPAM
  14. LYRICA [Concomitant]
     Active Substance: PREGABALIN
  15. PRINZIDE [Concomitant]
     Active Substance: HYDROCHLOROTHIAZIDE\LISINOPRIL
  16. ZOLOFT [Concomitant]
     Active Substance: SERTRALINE HYDROCHLORIDE
  17. GLUCOPHAGE [Concomitant]
     Active Substance: METFORMIN HYDROCHLORIDE
  18. LEVOTHYROXINE. [Concomitant]
     Active Substance: LEVOTHYROXINE
  19. FENTANYL. [Concomitant]
     Active Substance: FENTANYL
  20. MIDAZOLAM. [Concomitant]
     Active Substance: MIDAZOLAM
  21. SUCCINYLCHOLINE [Concomitant]
     Active Substance: SUCCINYLCHOLINE
  22. BISACODYL. [Concomitant]
     Active Substance: BISACODYL
  23. KETALAR [Concomitant]
     Active Substance: KETAMINE HYDROCHLORIDE
  24. EPHEDRINE. [Concomitant]
     Active Substance: EPHEDRINE
  25. NALBUPHINE [Concomitant]
     Active Substance: NALBUPHINE
  26. SYNTHROID [Concomitant]
     Active Substance: LEVOTHYROXINE SODIUM
  27. VITAMIN D3 [Concomitant]
     Active Substance: CHOLECALCIFEROL
  28. HUMULIN NOS [Concomitant]
     Active Substance: INSULIN HUMAN
  29. AMBIEN [Concomitant]
     Active Substance: ZOLPIDEM TARTRATE
  30. ESTRADIOL. [Concomitant]
     Active Substance: ESTRADIOL
  31. ADDERALL [Concomitant]
     Active Substance: AMPHETAMINE ASPARTATE\AMPHETAMINE SULFATE\DEXTROAMPHETAMINE SACCHARATE\DEXTROAMPHETAMINE SULFATE
  32. TRANDATE [Concomitant]
     Active Substance: LABETALOL HYDROCHLORIDE
  33. HYDROMORPHONE [Concomitant]
     Active Substance: HYDROMORPHONE
  34. PROTHROMBIN [Concomitant]
     Active Substance: PROTHROMBIN
  35. OXYTOCIN. [Concomitant]
     Active Substance: OXYTOCIN
  36. ROBAXIN [Concomitant]
     Active Substance: METHOCARBAMOL
  37. ACYCLOVIR. [Concomitant]
     Active Substance: ACYCLOVIR
  38. FARXIGA [Suspect]
     Active Substance: DAPAGLIFLOZIN PROPANEDIOL
     Indication: BLOOD PRESSURE DECREASED
     Route: 048
     Dates: start: 20171120
  39. XIGDUO XR [Suspect]
     Active Substance: DAPAGLIFLOZIN PROPANEDIOL\METFORMIN HYDROCHLORIDE
     Route: 048
  40. RELION [Concomitant]
  41. COREG [Concomitant]
     Active Substance: CARVEDILOL
  42. FLEXERIL [Concomitant]
     Active Substance: CYCLOBENZAPRINE HYDROCHLORIDE
  43. OSCAL [Concomitant]
     Active Substance: CALCIUM CARBONATE
  44. DEXTROAMPHETAMINE. [Concomitant]
     Active Substance: DEXTROAMPHETAMINE
  45. VASOTEC [Concomitant]
     Active Substance: ENALAPRIL MALEATE
  46. TORADOL [Concomitant]
     Active Substance: KETOROLAC TROMETHAMINE
  47. PHENERGAN [Concomitant]
     Active Substance: PROMETHAZINE HYDROCHLORIDE
  48. SILVADENE [Concomitant]
     Active Substance: SILVER SULFADIAZINE
  49. GLYBURIDE. [Concomitant]
     Active Substance: GLYBURIDE
  50. FARXIGA [Suspect]
     Active Substance: DAPAGLIFLOZIN PROPANEDIOL
     Indication: WEIGHT DECREASED
     Route: 048
     Dates: start: 20171120
  51. ROPINIROLE. [Concomitant]
     Active Substance: ROPINIROLE
  52. DOXYCYCLINE HYCLATE. [Concomitant]
     Active Substance: DOXYCYCLINE HYCLATE
  53. MORPHINE [Concomitant]
     Active Substance: MORPHINE
  54. CALCIUM CARBONATE. [Concomitant]
     Active Substance: CALCIUM CARBONATE
  55. ESOMEPRAZOLE. [Concomitant]
     Active Substance: ESOMEPRAZOLE MAGNESIUM
  56. CLARITIN [Concomitant]
     Active Substance: LORATADINE
  57. AMPHETAMINE [Concomitant]
     Active Substance: AMPHETAMINE
  58. LANTUS [Concomitant]
     Active Substance: INSULIN GLARGINE
  59. DIFLUCAN [Concomitant]
     Active Substance: FLUCONAZOLE
  60. ADIPEX [Concomitant]
     Active Substance: PHENTERMINE
  61. VYVANSE [Concomitant]
     Active Substance: LISDEXAMFETAMINE DIMESYLATE
  62. TRULICITY [Concomitant]
     Active Substance: DULAGLUTIDE
  63. SERTRALINE [Concomitant]
     Active Substance: SERTRALINE HYDROCHLORIDE
  64. DEMEROL [Concomitant]
     Active Substance: MEPERIDINE HYDROCHLORIDE
  65. ZITHROMAX [Concomitant]
     Active Substance: AZITHROMYCIN DIHYDRATE
  66. ALDACTONE [Concomitant]
     Active Substance: SPIRONOLACTONE
  67. SINEMET [Concomitant]
     Active Substance: CARBIDOPA\LEVODOPA
  68. ZOFRAN [Concomitant]
     Active Substance: ONDANSETRON HYDROCHLORIDE
  69. KLOR-CON [Concomitant]
     Active Substance: POTASSIUM CHLORIDE
  70. ACETAMINOPHEN-HYDROCODONE [Concomitant]
     Active Substance: ACETAMINOPHEN\HYDROCODONE
  71. SMZ/TMP [Concomitant]
     Active Substance: SULFAMETHOXAZOLE\TRIMETHOPRIM
  72. LIDOCAINE. [Concomitant]
     Active Substance: LIDOCAINE
  73. KETOROLAC [Concomitant]
     Active Substance: KETOROLAC TROMETHAMINE
  74. BUPIVACAINE. [Concomitant]
     Active Substance: BUPIVACAINE
  75. COLACE [Concomitant]
     Active Substance: DOCUSATE SODIUM
  76. FARXIGA [Suspect]
     Active Substance: DAPAGLIFLOZIN PROPANEDIOL
     Indication: TYPE 2 DIABETES MELLITUS
     Route: 048
     Dates: start: 20171120
  77. LISINOPRIL. [Concomitant]
     Active Substance: LISINOPRIL
  78. PROVENTIL [Concomitant]
     Active Substance: ALBUTEROL
  79. PERCOCET [Concomitant]
     Active Substance: ACETAMINOPHEN\OXYCODONE HYDROCHLORIDE
  80. DOXEPIN [Concomitant]
     Active Substance: DOXEPIN
  81. EMLA [Concomitant]
     Active Substance: LIDOCAINE\PRILOCAINE
  82. VITAMIN D2 [Concomitant]
     Active Substance: ERGOCALCIFEROL
  83. HUMALOG [Concomitant]
     Active Substance: INSULIN LISPRO
  84. NARCAN [Concomitant]
     Active Substance: NALOXONE HYDROCHLORIDE
  85. DRONABINOL. [Concomitant]
     Active Substance: DRONABINOL
  86. CEFTRIAXONE. [Concomitant]
     Active Substance: CEFTRIAXONE
  87. NIFEDIPINE. [Concomitant]
     Active Substance: NIFEDIPINE
  88. DURAMORPH [Concomitant]
     Active Substance: MORPHINE SULFATE
  89. MEPERIDINE [Concomitant]
     Active Substance: MEPERIDINE

REACTIONS (12)
  - Perineal abscess [Unknown]
  - Vulval abscess [Unknown]
  - Urinary tract infection [Unknown]
  - Sepsis [Unknown]
  - Cellulitis [Unknown]
  - Vulvitis [Unknown]
  - Vulval cellulitis [Unknown]
  - Perineal cellulitis [Unknown]
  - Necrotising fasciitis [Unknown]
  - Gangrene [Unknown]
  - Fournier^s gangrene [Unknown]
  - Cellulitis gangrenous [Unknown]

NARRATIVE: CASE EVENT DATE: 20190614
